FAERS Safety Report 10526653 (Version 3)
Quarter: 2015Q1

REPORT INFORMATION
  Report Type: Spontaneous
  Country: IT (occurrence: IT)
  Receive Date: 20141020
  Receipt Date: 20150211
  Transmission Date: 20150720
  Serious: Yes (Hospitalization)
  Sender: FDA-Public Use
  Company Number: IT-BIOGENIDEC-2014BI106847

PATIENT
  Age: 31 Year
  Sex: Female

DRUGS (3)
  1. ARIANNA [Concomitant]
     Active Substance: ETHINYL ESTRADIOL\GESTODENE
     Indication: CONTRACEPTION
     Route: 048
     Dates: start: 20010301, end: 20141002
  2. DULOXETINE [Concomitant]
     Active Substance: DULOXETINE
     Indication: DEPRESSION
     Route: 048
     Dates: start: 20080901, end: 20141002
  3. TYSABRI [Suspect]
     Active Substance: NATALIZUMAB
     Indication: MULTIPLE SCLEROSIS
     Route: 042
     Dates: start: 20140917, end: 20141002

REACTIONS (4)
  - Loss of consciousness [Recovered/Resolved]
  - Vertigo [Recovered/Resolved]
  - Visual impairment [Recovered/Resolved]
  - Transient ischaemic attack [Recovered/Resolved]

NARRATIVE: CASE EVENT DATE: 20141002
